FAERS Safety Report 25716521 (Version 1)
Quarter: 2025Q3

REPORT INFORMATION
  Report Type: Spontaneous
  Country: EU (occurrence: EU)
  Receive Date: 20250822
  Receipt Date: 20250822
  Transmission Date: 20251020
  Serious: Yes (Other)
  Sender: AMGEN
  Company Number: EU-AMGEN-PRTSP2025162707

PATIENT
  Age: 42 Year
  Sex: Male

DRUGS (4)
  1. BEVACIZUMAB [Suspect]
     Active Substance: BEVACIZUMAB
     Indication: Vasoproliferative retinal tumour
     Dosage: UNK UNK, QMO
  2. DEXAMETHASONE [Concomitant]
     Active Substance: DEXAMETHASONE
     Indication: Vasoproliferative retinal tumour
  3. AFLIBERCEPT [Concomitant]
     Active Substance: AFLIBERCEPT
     Indication: Vasoproliferative retinal tumour
     Dosage: UNK UNK, QMO
  4. AFLIBERCEPT [Concomitant]
     Active Substance: AFLIBERCEPT
     Dosage: UNK UNK, Q8WK

REACTIONS (8)
  - Vitreous haemorrhage [Unknown]
  - Retinal exudates [Unknown]
  - Retinal fibrosis [Unknown]
  - Retinal degeneration [Unknown]
  - Acquired hypertrophy of the retinal pigment epithelium [Unknown]
  - Vasoproliferative retinal tumour [Unknown]
  - Epiretinal membrane [Unknown]
  - Off label use [Unknown]
